FAERS Safety Report 5802795-9 (Version None)
Quarter: 2008Q3

REPORT INFORMATION
  Report Type: 
  Country: None (occurrence: None)
  Receive Date: 20080708
  Receipt Date: 20080627
  Transmission Date: 20090109
  Serious: Yes (Other)
  Sender: FDA-Public Use
  Company Number: AU-AMGEN-US291140

PATIENT
  Sex: Male

DRUGS (2)
  1. ENBREL [Suspect]
     Indication: RHEUMATOID ARTHRITIS
     Dosage: UNKNOWN
     Route: 058
     Dates: end: 20071001
  2. METHOTREXATE [Concomitant]

REACTIONS (2)
  - ANTINUCLEAR ANTIBODY INCREASED [None]
  - GLOMERULONEPHRITIS [None]
